FAERS Safety Report 11075368 (Version 12)
Quarter: 2022Q1

REPORT INFORMATION
  Report Type: Spontaneous
  Country: US (occurrence: US)
  Receive Date: 20150429
  Receipt Date: 20220309
  Transmission Date: 20220424
  Serious: Yes (Hospitalization, Other)
  Sender: FDA-Public Use
  Company Number: US-PFIZER INC-2015146259

PATIENT
  Age: 65 Year
  Sex: Female
  Weight: 89 kg

DRUGS (7)
  1. LYRICA [Suspect]
     Active Substance: PREGABALIN
     Indication: Fibromyalgia
     Dosage: 300 MG, 3X/DAY
     Route: 048
  2. PROMETHAZINE [Concomitant]
     Active Substance: PROMETHAZINE HYDROCHLORIDE
     Indication: Impaired gastric emptying
     Dosage: UNK
  3. OMEPRAZOLE [Concomitant]
     Active Substance: OMEPRAZOLE
     Dosage: UNK
  4. MECLIZINE HYDROCHLORIDE [Concomitant]
     Active Substance: MECLIZINE HYDROCHLORIDE
     Dosage: UNK
  5. BUSPIRONE [Concomitant]
     Active Substance: BUSPIRONE HYDROCHLORIDE
     Indication: Impaired gastric emptying
     Dosage: UNK
  6. NORCO [Concomitant]
     Active Substance: ACETAMINOPHEN\HYDROCODONE BITARTRATE
     Indication: Fibromyalgia
     Dosage: 2 DF, 3X/DAY (10/325, TWO TABLETS, BY MOUTH, THREE TIMES A DAY)
     Route: 048
  7. NORCO [Concomitant]
     Active Substance: ACETAMINOPHEN\HYDROCODONE BITARTRATE
     Indication: Pain

REACTIONS (13)
  - Malaise [Recovered/Resolved]
  - Cholelithiasis [Recovered/Resolved]
  - Foot deformity [Unknown]
  - Bone disorder [Unknown]
  - Prescribed overdose [Unknown]
  - Product prescribing error [Unknown]
  - Intercepted product prescribing error [Unknown]
  - Bursitis [Unknown]
  - Arthropathy [Unknown]
  - Insomnia [Unknown]
  - Influenza [Recovered/Resolved]
  - Memory impairment [Unknown]
  - Weight decreased [Unknown]

NARRATIVE: CASE EVENT DATE: 20150101
